FAERS Safety Report 23458546 (Version 1)
Quarter: 2024Q1

REPORT INFORMATION
  Report Type: Spontaneous
  Country: CN (occurrence: CN)
  Receive Date: 20240130
  Receipt Date: 20240130
  Transmission Date: 20240409
  Serious: Yes (Hospitalization)
  Sender: FDA-Public Use
  Company Number: CN-Merck Healthcare KGaA-2024004304

PATIENT
  Age: 51 Year
  Sex: Male
  Weight: 44 kg

DRUGS (3)
  1. ERBITUX [Suspect]
     Active Substance: CETUXIMAB
     Indication: Hypopharyngeal cancer
     Dosage: 600 MG, UNKNOWN
     Route: 041
     Dates: start: 20231125
  2. DOCETAXEL [Suspect]
     Active Substance: DOCETAXEL\DOCETAXEL ANHYDROUS
     Indication: Hypopharyngeal cancer
     Dosage: UNK UNK, UNKNOWN
     Route: 041
     Dates: start: 20231126, end: 20231126
  3. CISPLATIN [Suspect]
     Active Substance: CISPLATIN
     Indication: Hypopharyngeal cancer
     Dosage: UNK UNK, UNKNOWN
     Route: 041
     Dates: start: 20231126, end: 20231126

REACTIONS (1)
  - Myelosuppression [Recovering/Resolving]

NARRATIVE: CASE EVENT DATE: 20231205
